FAERS Safety Report 11109220 (Version 1)
Quarter: 2015Q2

REPORT INFORMATION
  Report Type: Other
  Country: US (occurrence: US)
  Receive Date: 20150513
  Receipt Date: 20150513
  Transmission Date: 20150821
  Serious: Yes (Death, Hospitalization, Other)
  Sender: FDA-Public Use
  Company Number: US-ACTELION-A-CH2015-117703

PATIENT
  Age: 20 Year
  Sex: Female

DRUGS (3)
  1. SILDENAFIL. [Concomitant]
     Active Substance: SILDENAFIL
  2. TREPROSTINIL [Concomitant]
     Active Substance: TREPROSTINIL
     Route: 042
  3. TRACLEER [Suspect]
     Active Substance: BOSENTAN\BOSENTAN MONOHYDRATE
     Indication: PULMONARY ARTERIAL HYPERTENSION
     Route: 048

REACTIONS (6)
  - Pneumonia [Fatal]
  - Therapeutic embolisation [Fatal]
  - Sepsis [Fatal]
  - Condition aggravated [Fatal]
  - Pulmonary arterial hypertension [Fatal]
  - Haemoptysis [Fatal]
